FAERS Safety Report 9518985 (Version 1)
Quarter: 2013Q3

REPORT INFORMATION
  Report Type: Spontaneous
  Country: US (occurrence: None)
  Receive Date: 20130911
  Receipt Date: 20130911
  Transmission Date: 20140515
  Serious: Yes (Death)
  Sender: FDA-Public Use
  Company Number: None

PATIENT
  Age: 50 Year
  Sex: Female

DRUGS (2)
  1. AFINITOR [Suspect]
     Indication: NEOPLASM
     Dosage: 10MG QD PO
     Route: 048
     Dates: start: 20130710, end: 20130820
  2. XANAX [Concomitant]

REACTIONS (1)
  - Death [None]
